FAERS Safety Report 8768239 (Version 1)
Quarter: 2012Q4

REPORT INFORMATION
  Report Type: 
  Country: JP (occurrence: JP)
  Receive Date: 20120905
  Receipt Date: 20120905
  Transmission Date: 20130627
  Serious: Yes (Other)
  Sender: FDA-Public Use
  Company Number: JP-VIIV HEALTHCARE LIMITED-B0827553A

PATIENT
  Age: 31 Year
  Sex: Female

DRUGS (3)
  1. RETROVIR [Suspect]
     Indication: HIV INFECTION
     Dosage: 400MG Per day
     Route: 048
     Dates: start: 20111222, end: 20120228
  2. EPIVIR [Suspect]
     Indication: HIV INFECTION
     Dosage: 300MG Per day
     Route: 048
     Dates: start: 20111222, end: 20120523
  3. KALETRA [Suspect]
     Indication: HIV INFECTION
     Dosage: 4IUAX Per day
     Route: 048
     Dates: start: 20111222, end: 20120320

REACTIONS (5)
  - Anaemia [Recovered/Resolved]
  - Liver disorder [Unknown]
  - Haemoglobin decreased [Unknown]
  - Exposure during pregnancy [Unknown]
  - Live birth [Unknown]
